FAERS Safety Report 9420105 (Version 3)
Quarter: 2013Q4

REPORT INFORMATION
  Report Type: Spontaneous
  Country: FR (occurrence: FR)
  Receive Date: 20130725
  Receipt Date: 20131122
  Transmission Date: 20140711
  Serious: Yes (Hospitalization)
  Sender: FDA-Public Use
  Company Number: FR-GLAXOSMITHKLINE-B0909704A

PATIENT
  Age: 33 Year
  Sex: Male
  Weight: 63 kg

DRUGS (1)
  1. VOTRIENT [Suspect]
     Indication: SARCOMA
     Dosage: 1600MG SINGLE DOSE
     Route: 048
     Dates: start: 20130716, end: 20130716

REACTIONS (4)
  - Tumour haemorrhage [Recovering/Resolving]
  - Tumour ulceration [Recovering/Resolving]
  - Accidental overdose [Unknown]
  - Drug dispensing error [Unknown]
